FAERS Safety Report 23524375 (Version 1)
Quarter: 2024Q1

REPORT INFORMATION
  Report Type: Spontaneous
  Country: ES (occurrence: ES)
  Receive Date: 20240214
  Receipt Date: 20240214
  Transmission Date: 20240409
  Serious: Yes (Other)
  Sender: FDA-Public Use
  Company Number: ES-JNJFOC-20240220086

PATIENT
  Age: 58 Year
  Sex: Male

DRUGS (3)
  1. SPRAVATO [Suspect]
     Active Substance: ESKETAMINE
     Indication: Depression
     Dates: start: 20240125, end: 20240125
  2. SPRAVATO [Suspect]
     Active Substance: ESKETAMINE
     Dates: start: 20240129, end: 20240129
  3. SPRAVATO [Suspect]
     Active Substance: ESKETAMINE
     Dates: start: 20240201, end: 20240201

REACTIONS (3)
  - Bradycardia [Recovered/Resolved]
  - Adverse drug reaction [Unknown]
  - Off label use [Unknown]

NARRATIVE: CASE EVENT DATE: 20240125
